FAERS Safety Report 4333102-9 (Version None)
Quarter: 2004Q2

REPORT INFORMATION
  Report Type: 
  Country: None (occurrence: None)
  Receive Date: 20040402
  Receipt Date: 20040319
  Transmission Date: 20050107
  Serious: Yes (Life-Threatening, Hospitalization)
  Sender: FDA-Public Use
  Company Number: 2003-BP-10634PF

PATIENT
  Age: 71 Year
  Sex: Male

DRUGS (5)
  1. SPIRIVA [Suspect]
     Indication: CHRONIC OBSTRUCTIVE AIRWAYS DISEASE
     Dosage: 18 MCG IH
     Route: 055
     Dates: start: 20031110, end: 20031110
  2. SYMBICORT (SYMBICORT TURBUHALER   DRACO) [Concomitant]
  3. SALBUTAMOL (SALBUTAMOL) [Concomitant]
  4. COMBIVENT (COMBIVENT /GFR) [Concomitant]
  5. OXYGEN (OXYGEN) [Concomitant]

REACTIONS (5)
  - CARDIAC DISORDER [None]
  - DYSPNOEA [None]
  - PO2 DECREASED [None]
  - SINUS TACHYCARDIA [None]
  - WHITE BLOOD CELL COUNT INCREASED [None]
